FAERS Safety Report 4691310-1 (Version None)
Quarter: 2005Q2

REPORT INFORMATION
  Report Type: 
  Country: None (occurrence: None)
  Receive Date: 20050614
  Receipt Date: 20050531
  Transmission Date: 20051028
  Serious: Yes (Hospitalization, Other)
  Sender: FDA-Public Use
  Company Number: 2005081491

PATIENT
  Sex: Female
  Weight: 90.7194 kg

DRUGS (9)
  1. CELEBREX [Suspect]
     Indication: ARTHRALGIA
     Dosage: 400 MG (200 MG, 2 IN 1 D), ORAL
     Route: 048
     Dates: end: 20050101
  2. COUMADIN [Concomitant]
  3. PROZAC [Concomitant]
  4. FOLIC ACID [Concomitant]
  5. ZOCOR [Concomitant]
  6. PROPOXYPHENE (DEXTROPROPOXYPHENE) [Concomitant]
  7. ALLEGRA-D [Concomitant]
  8. SYNTHROID [Concomitant]
  9. ADVAIR  (FLUTICAOSNE PROPIONATE, SALMETEROL XINAFOATE) [Concomitant]

REACTIONS (10)
  - BRONCHITIS [None]
  - CARDIAC NEOPLASM UNSPECIFIED [None]
  - CARDIOMEGALY [None]
  - DRUG EFFECT DECREASED [None]
  - INTERNATIONAL NORMALISED RATIO FLUCTUATION [None]
  - KNEE ARTHROPLASTY [None]
  - MYOCARDIAL INFARCTION [None]
  - PLEURISY [None]
  - PNEUMONIA [None]
  - THROMBOSIS [None]
